FAERS Safety Report 17306076 (Version 1)
Quarter: 2020Q1

REPORT INFORMATION
  Report Type: Spontaneous
  Country: FR (occurrence: FR)
  Receive Date: 20200123
  Receipt Date: 20200123
  Transmission Date: 20200409
  Serious: Yes (Hospitalization)
  Sender: FDA-Public Use
  Company Number: FR-TEVA-2020-FR-1171772

PATIENT
  Age: 48 Year
  Sex: Female

DRUGS (3)
  1. DIAZEPAM. [Suspect]
     Active Substance: DIAZEPAM
     Route: 065
  2. AMITRIPTYLINE [Suspect]
     Active Substance: AMITRIPTYLINE
     Route: 065
  3. TRIHEXYPHENIDYLE (CHLORHYDRATE DE) [Suspect]
     Active Substance: TRIHEXYPHENIDYL
     Route: 065

REACTIONS (2)
  - Drug abuse [Unknown]
  - Coma [Recovered/Resolved]
